FAERS Safety Report 5296291-8 (Version None)
Quarter: 2007Q2

REPORT INFORMATION
  Report Type: 
  Country: None (occurrence: None)
  Receive Date: 20070413
  Receipt Date: 20070402
  Transmission Date: 20071010
  Serious: Yes (Other)
  Sender: FDA-Public Use
  Company Number: IT-JNJFOC-20070400876

PATIENT
  Age: 70 Year
  Sex: Male

DRUGS (7)
  1. TOPAMAX [Suspect]
     Indication: ESSENTIAL TREMOR
     Route: 065
  2. PRIMIDONE [Concomitant]
     Indication: ESSENTIAL TREMOR
  3. AMIODORANE [Concomitant]
     Indication: HYPERTENSION
  4. FUROSEMIDE [Concomitant]
     Indication: HYPERTENSION
  5. SPIRONOLACTONE [Concomitant]
     Indication: HYPERTENSION
  6. ACETYLSALICYLIC ACID SRT [Concomitant]
     Indication: CARDIAC DISORDER
  7. ATORVASTAINE [Concomitant]
     Indication: HYPERCHOLESTEROLAEMIA

REACTIONS (4)
  - ASTHENIA [None]
  - EXTRASYSTOLES [None]
  - MALAISE [None]
  - TACHYCARDIA [None]
